FAERS Safety Report 7847278-X (Version None)
Quarter: 2011Q4

REPORT INFORMATION
  Report Type: 
  Country: None (occurrence: None)
  Receive Date: 20111025
  Receipt Date: 20111012
  Transmission Date: 20120403
  Serious: Yes (Congenital Anomaly, Other)
  Sender: FDA-Public Use
  Company Number: GB-BAUSCH-2011BL007155

PATIENT

DRUGS (4)
  1. PREDNISOLONE [Suspect]
     Route: 064
     Dates: start: 20110208, end: 20110304
  2. PREDNISOLONE [Suspect]
     Route: 064
     Dates: start: 20110113, end: 20110118
  3. PREDNISOLONE [Suspect]
     Indication: ASTHMA
     Route: 064
     Dates: start: 20101201, end: 20101206
  4. PREDNISOLONE [Suspect]
     Route: 064
     Dates: start: 20110427

REACTIONS (3)
  - INTESTINAL MALROTATION [None]
  - MATERNAL DRUGS AFFECTING FOETUS [None]
  - CLEFT PALATE [None]
